FAERS Safety Report 8330286-2 (Version None)
Quarter: 2012Q2

REPORT INFORMATION
  Report Type: 
  Country: None (occurrence: None)
  Receive Date: 20120502
  Receipt Date: 20120420
  Transmission Date: 20120825
  Serious: Yes (Hospitalization, Other)
  Sender: FDA-Public Use
  Company Number: PHHY2012EC026848

PATIENT
  Sex: Female

DRUGS (7)
  1. EXFORGE HCT [Suspect]
     Indication: HYPERTENSION
     Dosage: 1 DF X (160/5/12.5 MG), DAILY
     Route: 048
     Dates: start: 20110301, end: 20120414
  2. HYGROTON [Concomitant]
  3. BISOPROLOL FUMARATE [Concomitant]
  4. IRBESARTAN [Concomitant]
     Dosage: UNK
  5. PHYSIOTHERAPY [Concomitant]
     Indication: MUSCULOSKELETAL CHEST PAIN
  6. NORVASC [Concomitant]
  7. METICORTEN [Concomitant]

REACTIONS (9)
  - MALAISE [None]
  - PALLOR [None]
  - PARAESTHESIA [None]
  - HYPERTENSIVE CRISIS [None]
  - NERVE INJURY [None]
  - BLOOD PRESSURE INCREASED [None]
  - BACK PAIN [None]
  - CORONARY ARTERY DISEASE [None]
  - ARRHYTHMIA [None]
